FAERS Safety Report 16704171 (Version 1)
Quarter: 2019Q3

REPORT INFORMATION
  Report Type: Spontaneous
  Country: AU (occurrence: AU)
  Receive Date: 20190814
  Receipt Date: 20190814
  Transmission Date: 20191004
  Serious: No
  Sender: FDA-Public Use
  Company Number: AU-BEH-2019105413

PATIENT
  Age: 73 Year
  Sex: Male
  Weight: 80 kg

DRUGS (1)
  1. PRIVIGEN [Suspect]
     Active Substance: HUMAN IMMUNOGLOBULIN G
     Indication: HYPOGAMMAGLOBULINAEMIA
     Dosage: 30 GRAM, TOT
     Route: 042
     Dates: start: 20190801, end: 20190801

REACTIONS (4)
  - Body temperature increased [Recovered/Resolved with Sequelae]
  - Headache [Recovered/Resolved with Sequelae]
  - Chills [Recovered/Resolved with Sequelae]
  - Muscle spasms [Recovered/Resolved with Sequelae]

NARRATIVE: CASE EVENT DATE: 20190801
